FAERS Safety Report 16729574 (Version 1)
Quarter: 2019Q3

REPORT INFORMATION
  Report Type: Spontaneous
  Country: US (occurrence: US)
  Receive Date: 20190822
  Receipt Date: 20190822
  Transmission Date: 20191005
  Serious: No
  Sender: FDA-Public Use
  Company Number: US-COVIS PHARMA B.V.-2018COV03800

PATIENT
  Sex: Male

DRUGS (1)
  1. ALTOPREV [Suspect]
     Active Substance: LOVASTATIN

REACTIONS (1)
  - Malaise [Unknown]
